FAERS Safety Report 23620964 (Version 1)
Quarter: 2024Q1

REPORT INFORMATION
  Report Type: Report from Study
  Country: CA (occurrence: CA)
  Receive Date: 20240312
  Receipt Date: 20240312
  Transmission Date: 20240410
  Serious: Yes (Hospitalization, Other)
  Sender: FDA-Public Use
  Company Number: CA-SA-SAC20230830000785

PATIENT
  Age: 45 Year
  Sex: Male

DRUGS (5)
  1. BELUMOSUDIL MESYLATE [Suspect]
     Active Substance: BELUMOSUDIL MESYLATE
     Indication: Chronic graft versus host disease
     Dosage: 200 MG, BID
     Route: 048
     Dates: start: 20230802
  2. BELUMOSUDIL MESYLATE [Suspect]
     Active Substance: BELUMOSUDIL MESYLATE
     Dosage: 0.5 DF, BID (1/2 A PILL TWICE A DAY)
     Route: 048
     Dates: start: 202308, end: 20230907
  3. SYMBICORT [Concomitant]
     Active Substance: BUDESONIDE\FORMOTEROL FUMARATE DIHYDRATE
     Dosage: UNK
  4. SPIRIVA [Concomitant]
     Active Substance: TIOTROPIUM BROMIDE MONOHYDRATE
     Dosage: UNK
  5. OMEPRAZOLE [Concomitant]
     Active Substance: OMEPRAZOLE
     Dosage: UNK

REACTIONS (10)
  - Carbon dioxide increased [Not Recovered/Not Resolved]
  - Altered state of consciousness [Unknown]
  - Respiratory failure [Recovering/Resolving]
  - Ventricular tachycardia [Unknown]
  - Cardiac arrest [Unknown]
  - Gastrointestinal haemorrhage [Unknown]
  - Pneumonia bacterial [Unknown]
  - COVID-19 pneumonia [Unknown]
  - Cough [Unknown]
  - Off label use [Unknown]

NARRATIVE: CASE EVENT DATE: 20230101
